FAERS Safety Report 25113830 (Version 1)
Quarter: 2025Q1

REPORT INFORMATION
  Report Type: Spontaneous
  Country: FR (occurrence: FR)
  Receive Date: 20250324
  Receipt Date: 20250324
  Transmission Date: 20250408
  Serious: Yes (Hospitalization, Other)
  Sender: CHEPLAPHARM
  Company Number: None

PATIENT
  Age: 53 Year
  Sex: Male

DRUGS (5)
  1. CLONAZEPAM [Suspect]
     Active Substance: CLONAZEPAM
  2. LYRICA [Suspect]
     Active Substance: PREGABALIN
  3. DIAZEPAM [Suspect]
     Active Substance: DIAZEPAM
  4. COCAINE [Suspect]
     Active Substance: COCAINE
  5. ALCOHOL [Suspect]
     Active Substance: ALCOHOL

REACTIONS (5)
  - Toxicity to various agents [Unknown]
  - Altered state of consciousness [Unknown]
  - Hyperhidrosis [Unknown]
  - Miosis [Unknown]
  - Drug use disorder [Unknown]

NARRATIVE: CASE EVENT DATE: 20241031
